FAERS Safety Report 5212622-9 (Version None)
Quarter: 2007Q1

REPORT INFORMATION
  Report Type: 
  Country: None (occurrence: None)
  Receive Date: 20070118
  Receipt Date: 20070107
  Transmission Date: 20070707
  Serious: Yes (Other)
  Sender: FDA-Public Use
  Company Number: US-PFIZER INC-2007002798

PATIENT
  Sex: Female
  Weight: 68 kg

DRUGS (3)
  1. CHANTIX [Suspect]
     Indication: SMOKING CESSATION THERAPY
  2. ADVIL [Concomitant]
     Indication: MYALGIA
  3. ADVIL [Concomitant]

REACTIONS (5)
  - ACTIVITIES OF DAILY LIVING IMPAIRED [None]
  - ATTENTION DEFICIT/HYPERACTIVITY DISORDER [None]
  - FEELING ABNORMAL [None]
  - HEADACHE [None]
  - STOMACH DISCOMFORT [None]
